FAERS Safety Report 16535064 (Version 1)
Quarter: 2019Q3

REPORT INFORMATION
  Report Type: Spontaneous
  Country: US (occurrence: US)
  Receive Date: 20190705
  Receipt Date: 20190705
  Transmission Date: 20191004
  Serious: No
  Sender: FDA-Public Use
  Company Number: US-TERSERA THERAPEUTICS LLC-TSR2018001520

PATIENT

DRUGS (1)
  1. ZOLADEX [Suspect]
     Active Substance: GOSERELIN ACETATE
     Indication: BREAST CANCER
     Dosage: UNK
     Route: 058
     Dates: start: 2017

REACTIONS (8)
  - Fatigue [Unknown]
  - Injection site bruising [Unknown]
  - Pain [Unknown]
  - Thyroid disorder [Unknown]
  - Vulvovaginal burning sensation [Unknown]
  - Weight increased [Unknown]
  - Visual impairment [Unknown]
  - Vaginal disorder [Unknown]
